FAERS Safety Report 6731748-1 (Version None)
Quarter: 2010Q2

REPORT INFORMATION
  Report Type: 
  Country: None (occurrence: None)
  Receive Date: 20100519
  Receipt Date: 20100510
  Transmission Date: 20101027
  Serious: Yes (Life-Threatening, Hospitalization, Other)
  Sender: FDA-Public Use
  Company Number: GB-PFIZER INC-2010041545

PATIENT
  Age: 74 Year
  Sex: Male
  Weight: 75.1 kg

DRUGS (5)
  1. SUTENT [Suspect]
     Indication: METASTATIC RENAL CELL CARCINOMA
     Dosage: 37.5 MG, 1X/DAY
     Route: 048
     Dates: start: 20091207, end: 20100205
  2. FRUSEMIDE [Concomitant]
     Dosage: 40 MG, 1X/DAY
     Route: 048
  3. ATENOLOL [Concomitant]
     Dosage: 25 MG, 1X/DAY
     Route: 048
  4. FELODIPINE [Concomitant]
     Dosage: 10 MG, 1X/DAY
     Route: 048
  5. GLICLAZIDE [Concomitant]
     Dosage: 40 MG, 2X/DAY
     Route: 048

REACTIONS (6)
  - ACUTE MYOCARDIAL INFARCTION [None]
  - CHEST PAIN [None]
  - DYSPNOEA [None]
  - FALL [None]
  - PULMONARY EMBOLISM [None]
  - RENAL FAILURE ACUTE [None]
